FAERS Safety Report 4968189-3 (Version None)
Quarter: 2006Q1

REPORT INFORMATION
  Report Type: 
  Country: None (occurrence: None)
  Receive Date: 20060201
  Receipt Date: 20051008
  Transmission Date: 20060701
  Serious: No
  Sender: FDA-Public Use
  Company Number: 2005PV003034

PATIENT
  Age: 64 Year
  Sex: Female
  Weight: 129.2752 kg

DRUGS (8)
  1. BYETTA [Suspect]
     Indication: DIABETES MELLITUS NON-INSULIN-DEPENDENT
     Dosage: 5 MCG;BID;SC
     Route: 058
     Dates: start: 20051010, end: 20051013
  2. METFORMIN [Concomitant]
  3. GLIPIZIDE [Concomitant]
  4. ALBUTEROL [Concomitant]
  5. PERCOCET [Concomitant]
  6. AVANDIA [Concomitant]
  7. NAPROXEN [Concomitant]
  8. ALPRAZOLAM [Concomitant]

REACTIONS (5)
  - HAEMORRHAGE URINARY TRACT [None]
  - INCORRECT DOSE ADMINISTERED [None]
  - INJECTION SITE HAEMORRHAGE [None]
  - INJECTION SITE IRRITATION [None]
  - MEDICATION ERROR [None]
